FAERS Safety Report 17622197 (Version 1)
Quarter: 2020Q2

REPORT INFORMATION
  Report Type: Spontaneous
  Country: US (occurrence: US)
  Receive Date: 20200403
  Receipt Date: 20200403
  Transmission Date: 20200713
  Serious: No
  Sender: FDA-Public Use
  Company Number: US-SUNOVION-2020SUN001015

PATIENT

DRUGS (1)
  1. LATUDA [Suspect]
     Active Substance: LURASIDONE HYDROCHLORIDE
     Dosage: 60 MG UNK
     Route: 048

REACTIONS (1)
  - Blood prolactin increased [Unknown]
